FAERS Safety Report 4960245-9 (Version None)
Quarter: 2006Q1

REPORT INFORMATION
  Report Type: 
  Country: None (occurrence: None)
  Receive Date: 20060328
  Receipt Date: 20060320
  Transmission Date: 20060701
  Serious: Yes (Hospitalization, Other)
  Sender: FDA-Public Use
  Company Number: 2006039303

PATIENT
  Age: 65 Year
  Sex: Female
  Weight: 85.2762 kg

DRUGS (5)
  1. NEURONTIN [Suspect]
     Indication: TREMOR
     Dosage: 300 MG (300 MG, 1 IN 1 D)
     Dates: start: 20020101
  2. ANTIBIOTICS (ANTIBIOTICS) [Suspect]
     Indication: SINUSITIS
     Dates: start: 20060201
  3. PAXIL [Concomitant]
  4. ZOCOR [Concomitant]
  5. DIOVAN [Concomitant]

REACTIONS (6)
  - FUNGAL INFECTION [None]
  - JOINT LOCK [None]
  - KNEE OPERATION [None]
  - MUSCLE INJURY [None]
  - SINUSITIS [None]
  - TENDON DISORDER [None]
